FAERS Safety Report 4950586-3 (Version None)
Quarter: 2006Q1

REPORT INFORMATION
  Report Type: 
  Country: None (occurrence: None)
  Receive Date: 20060321
  Receipt Date: 20060321
  Transmission Date: 20060701
  Serious: Yes (Hospitalization)
  Sender: FDA-Public Use
  Company Number: None

PATIENT
  Age: 65 Year
  Sex: Female
  Weight: 72.1 kg

DRUGS (10)
  1. GLEEVEC [Suspect]
     Indication: THYMOMA
     Dosage: 300 MG QD 21/21D
  2. XELODA [Suspect]
     Dosage: 2500 MGDX 14D
  3. PROTONIX [Concomitant]
  4. BUDEPRION [Concomitant]
  5. EFFEXOR XR [Concomitant]
  6. ALPRAZOLAM [Concomitant]
  7. COMPAZINE [Concomitant]
  8. SINGULAIR [Concomitant]
  9. ADVAIR DISKUS 100/50 [Concomitant]
  10. OXYCODONE [Concomitant]

REACTIONS (6)
  - ASTHENIA [None]
  - DRUG TOXICITY [None]
  - DYSPNOEA [None]
  - INFLAMMATION [None]
  - LUNG DISORDER [None]
  - LUNG NEOPLASM [None]
